FAERS Safety Report 9255108 (Version 1)
Quarter: 2013Q2

REPORT INFORMATION
  Report Type: Spontaneous
  Country: US (occurrence: US)
  Receive Date: 20130425
  Receipt Date: 20130425
  Transmission Date: 20140414
  Serious: Yes (Other)
  Sender: FDA-Public Use
  Company Number: US-ELI_LILLY_AND_COMPANY-US201304005647

PATIENT
  Sex: Female

DRUGS (3)
  1. FORTEO [Suspect]
     Indication: OSTEOPOROSIS
     Dosage: UNK, QD
     Dates: start: 20130409
  2. WELLBUTRIN [Concomitant]
     Indication: SMOKING CESSATION THERAPY
  3. VITAMIN D [Concomitant]

REACTIONS (10)
  - Myocardial infarction [Unknown]
  - Chest pain [Unknown]
  - Asthenia [Unknown]
  - Fatigue [Unknown]
  - Injection site urticaria [Recovering/Resolving]
  - Pain in extremity [Unknown]
  - Hypoaesthesia oral [Unknown]
  - Musculoskeletal stiffness [Unknown]
  - Anxiety [Unknown]
  - Malaise [Unknown]
